FAERS Safety Report 5729666-0 (Version None)
Quarter: 2008Q2

REPORT INFORMATION
  Report Type: 
  Country: None (occurrence: None)
  Receive Date: 20080506
  Receipt Date: 20080501
  Transmission Date: 20081010
  Serious: Yes (Other)
  Sender: FDA-Public Use
  Company Number: IT-BOEHRINGER INGELHEIM GMBH, GERMANY-2008-BP-06915RO

PATIENT
  Age: 11 Day
  Sex: Female

DRUGS (1)
  1. ZIDOVUDINE [Suspect]
     Indication: PROPHYLAXIS
     Route: 048

REACTIONS (19)
  - ACCIDENTAL OVERDOSE [None]
  - ANAEMIA [None]
  - ATAXIA [None]
  - BONE MARROW TOXICITY [None]
  - CEREBRAL PALSY [None]
  - CONVULSION [None]
  - ENCEPHALITIS [None]
  - HYPOTHERMIA [None]
  - LACTIC ACIDOSIS [None]
  - LETHARGY [None]
  - NAUSEA [None]
  - NEUTROPENIA [None]
  - NYSTAGMUS [None]
  - OVERDOSE [None]
  - PNEUMONIA [None]
  - RENAL SALT-WASTING SYNDROME [None]
  - SEPSIS [None]
  - STAPHYLOCOCCAL INFECTION [None]
  - VOMITING [None]
